FAERS Safety Report 10634582 (Version 2)
Quarter: 2015Q1

REPORT INFORMATION
  Report Type: Spontaneous
  Country: US (occurrence: US)
  Receive Date: 20141205
  Receipt Date: 20150316
  Transmission Date: 20150720
  Serious: No
  Sender: FDA-Public Use
  Company Number: US-ASTELLAS-2014US016731

PATIENT
  Age: 87 Year
  Sex: Male

DRUGS (1)
  1. XTANDI [Suspect]
     Active Substance: ENZALUTAMIDE
     Indication: PROSTATE CANCER
     Route: 048
     Dates: start: 20130723

REACTIONS (5)
  - Throat irritation [Unknown]
  - Product size issue [Recovering/Resolving]
  - Underdose [Unknown]
  - Dysphagia [Recovering/Resolving]
  - Foreign body [Recovering/Resolving]

NARRATIVE: CASE EVENT DATE: 20130723
